FAERS Safety Report 16817389 (Version 1)
Quarter: 2019Q3

REPORT INFORMATION
  Report Type: Spontaneous
  Country: US (occurrence: US)
  Receive Date: 20190917
  Receipt Date: 20190917
  Transmission Date: 20191005
  Serious: No
  Sender: FDA-Public Use
  Company Number: US-AMGEN-USASP2019149681

PATIENT
  Sex: Female

DRUGS (1)
  1. REPATHA [Suspect]
     Active Substance: EVOLOCUMAB
     Indication: PRODUCT USED FOR UNKNOWN INDICATION
     Dosage: UNK
     Route: 065
     Dates: start: 20190725

REACTIONS (8)
  - Night sweats [Unknown]
  - Back pain [Unknown]
  - Hepatic mass [Unknown]
  - Myalgia [Unknown]
  - Injection site erythema [Unknown]
  - Glucose tolerance impaired [Unknown]
  - Arthralgia [Unknown]
  - Chromaturia [Unknown]

NARRATIVE: CASE EVENT DATE: 2019
